FAERS Safety Report 16196560 (Version 1)
Quarter: 2019Q2

REPORT INFORMATION
  Report Type: Spontaneous
  Country: US (occurrence: US)
  Receive Date: 20190412
  Receipt Date: 20190412
  Transmission Date: 20190711
  Serious: Yes (Death)
  Sender: FDA-Public Use
  Company Number: None

PATIENT
  Age: 75 Year
  Sex: Male
  Weight: 108 kg

DRUGS (2)
  1. BOCEPREVIR [Suspect]
     Active Substance: BOCEPREVIR
     Indication: HEPATITIS C
     Dosage: ?          OTHER FREQUENCY:WEEKLY;?
     Route: 048
  2. INCIVEK [Suspect]
     Active Substance: TELAPREVIR

REACTIONS (1)
  - Lymphoma [None]

NARRATIVE: CASE EVENT DATE: 20171015
